FAERS Safety Report 5478197-4 (Version None)
Quarter: 2007Q4

REPORT INFORMATION
  Report Type: 
  Country: None (occurrence: None)
  Receive Date: 20071005
  Receipt Date: 20070928
  Transmission Date: 20080405
  Serious: Yes (Hospitalization)
  Sender: FDA-Public Use
  Company Number: DE-AVENTIS-200712353DE

PATIENT
  Age: 68 Year
  Sex: Male

DRUGS (14)
  1. DOCETAXEL [Suspect]
     Route: 041
     Dates: start: 20070913, end: 20070913
  2. OXALIPLATIN [Suspect]
     Route: 041
     Dates: start: 20070913, end: 20070913
  3. ENOXAPARIN SODIUM [Concomitant]
     Route: 058
     Dates: start: 20070829, end: 20070907
  4. HUMALOG [Concomitant]
     Route: 058
     Dates: start: 20070829, end: 20070907
  5. PROTAPHAN                          /01322201/ [Concomitant]
     Route: 058
     Dates: start: 20070829, end: 20070907
  6. OMEPRAZOLE [Concomitant]
     Route: 048
     Dates: start: 20070829, end: 20070907
  7. LEVOTHYROXINE SODIUM [Concomitant]
     Route: 048
     Dates: start: 20070829, end: 20070907
  8. PROVASIN TAB [Concomitant]
     Dosage: DOSE: VAGUE
     Route: 048
     Dates: start: 20070829, end: 20070907
  9. ULCOGANT [Concomitant]
     Dosage: DOSE: NOT REPORTED
     Route: 048
     Dates: start: 20070829, end: 20070907
  10. TEPILTA                            /01450201/ [Concomitant]
     Dosage: DOSE: NOT REPORTED
     Route: 048
     Dates: start: 20070829, end: 20070907
  11. DEXAMETHASONE [Concomitant]
     Dates: start: 20070830, end: 20070830
  12. DEXAMETHASONE [Concomitant]
     Dates: start: 20070831, end: 20070831
  13. DEXAMETHASONE [Concomitant]
     Dates: start: 20070906, end: 20070906
  14. DEXAMETHASONE [Concomitant]
     Dates: start: 20070907, end: 20070907

REACTIONS (3)
  - DIARRHOEA [None]
  - HYPERTENSION [None]
  - HYPOGLYCAEMIA [None]
